FAERS Safety Report 7565190-0 (Version None)
Quarter: 2011Q2

REPORT INFORMATION
  Report Type: 
  Country: None (occurrence: None)
  Receive Date: 20110622
  Receipt Date: 20081001
  Transmission Date: 20111010
  Serious: Yes (Death)
  Sender: FDA-Public Use
  Company Number: PHHY2008DE37544

PATIENT
  Sex: Female

DRUGS (9)
  1. SANDOSTATIN LAR [Suspect]
     Dosage: 30 MG, UNK
     Route: 030
     Dates: start: 20081001
  2. TRILEPTA [Concomitant]
  3. VIVEO [Concomitant]
  4. SANDOSTATIN LAR [Suspect]
     Indication: NEUROFIBROMATOSIS
     Dosage: 200 MG, TID
     Route: 058
     Dates: start: 20081001
  5. KEPPRA [Concomitant]
     Dosage: 500 MG, DAILY
  6. LACTULOSE [Concomitant]
  7. SODIUM CHLORIDE [Concomitant]
  8. DEXAMETHASONE [Concomitant]
  9. SANDOSTATIN LAR [Suspect]
     Dosage: 20 MG, UNK
     Route: 030
     Dates: start: 20081001

REACTIONS (1)
  - DEATH [None]
